FAERS Safety Report 4469936-X (Version None)
Quarter: 2004Q4

REPORT INFORMATION
  Report Type: 
  Country: None (occurrence: None)
  Receive Date: 20041008
  Receipt Date: 20040924
  Transmission Date: 20050328
  Serious: Yes (Death)
  Sender: FDA-Public Use
  Company Number: US-JNJFOC-20040908582

PATIENT
  Sex: Male

DRUGS (12)
  1. NIZORAL [Suspect]
     Route: 049
     Dates: start: 20040501
  2. POTASSIUM [Concomitant]
  3. MORPHINE [Concomitant]
     Indication: PAIN
  4. PREDNISONE [Concomitant]
  5. PAXIL [Concomitant]
  6. LASIX [Concomitant]
  7. KETOCONAZOLE [Concomitant]
  8. LASIX [Concomitant]
  9. XANAX [Concomitant]
  10. SENOKOT [Concomitant]
  11. COMPAZINE [Concomitant]
  12. RIDAN [Concomitant]

REACTIONS (1)
  - METASTASES TO BONE [None]
